FAERS Safety Report 12282307 (Version 1)
Quarter: 2016Q2

REPORT INFORMATION
  Report Type: Spontaneous
  Country: JP (occurrence: JP)
  Receive Date: 20160419
  Receipt Date: 20160419
  Transmission Date: 20160815
  Serious: Yes (Hospitalization, Other)
  Sender: FDA-Public Use
  Company Number: JP-CORDEN PHARMA LATINA S.P.A.-JP-2016COR000078

PATIENT
  Age: 75 Year
  Sex: Female

DRUGS (2)
  1. CARBOPLATIN. [Suspect]
     Active Substance: CARBOPLATIN
     Indication: SMALL CELL CARCINOMA
     Dosage: A TOTAL OF FOUR COURSES
     Dates: start: 20100119
  2. ETOPOSIDE. [Suspect]
     Active Substance: ETOPOSIDE
     Indication: SMALL CELL CARCINOMA
     Dosage: A TOTAL OF FOUR COURSES
     Dates: start: 20100119

REACTIONS (10)
  - C-reactive protein increased [Recovering/Resolving]
  - Diarrhoea [Recovering/Resolving]
  - Listeriosis [Recovering/Resolving]
  - Pyrexia [Recovering/Resolving]
  - Constipation [Recovering/Resolving]
  - Pancytopenia [Recovering/Resolving]
  - Chills [Recovering/Resolving]
  - Neutropenia [Recovered/Resolved]
  - Sepsis [Recovering/Resolving]
  - Fibrin degradation products increased [Recovering/Resolving]

NARRATIVE: CASE EVENT DATE: 2010
